FAERS Safety Report 4378842-0 (Version None)
Quarter: 2004Q2

REPORT INFORMATION
  Report Type: 
  Country: None (occurrence: None)
  Receive Date: 20040609
  Receipt Date: 20040527
  Transmission Date: 20050107
  Serious: Yes (Death)
  Sender: FDA-Public Use
  Company Number: 2003-BP-09439NB

PATIENT
  Age: 74 Year
  Sex: Male

DRUGS (7)
  1. MOBIC [Suspect]
     Indication: CANCER PAIN
     Dosage: 10 MG (10 MG), PO
     Route: 048
     Dates: start: 20031001, end: 20031016
  2. MAGNESIUM OXIDE (PL) [Concomitant]
  3. KADIAN (TA) [Concomitant]
  4. CARBOPLASTIN (AM) [Concomitant]
  5. PARAPLATIN (CARBOPLATIN)(AMT) [Concomitant]
  6. PANTOSIN (PANTETHINE (PL) [Concomitant]
  7. OPSO (LOH) [Concomitant]

REACTIONS (3)
  - INTERSTITIAL LUNG DISEASE [None]
  - LYMPHOCYTE STIMULATION TEST POSITIVE [None]
  - RESPIRATORY FAILURE [None]
